FAERS Safety Report 18712060 (Version 8)
Quarter: 2022Q1

REPORT INFORMATION
  Report Type: Spontaneous
  Country: US (occurrence: US)
  Receive Date: 20210107
  Receipt Date: 20220224
  Transmission Date: 20220423
  Serious: Yes (Other)
  Sender: FDA-Public Use
  Company Number: US-PFIZER INC-2021005403

PATIENT
  Age: 75 Year
  Sex: Female

DRUGS (5)
  1. XELJANZ XR [Suspect]
     Active Substance: TOFACITINIB CITRATE
     Indication: Rheumatoid arthritis
     Dosage: 11 MG, DAILY
     Route: 048
     Dates: start: 20201229
  2. XELJANZ XR [Suspect]
     Active Substance: TOFACITINIB CITRATE
     Dosage: 11 MG, 1X/DAY, (ONCE DAILY)
     Route: 048
     Dates: start: 2021
  3. XELJANZ XR [Suspect]
     Active Substance: TOFACITINIB CITRATE
     Dosage: 11 MG, DAILY
     Route: 048
     Dates: start: 20211229
  4. TYLENOL [Concomitant]
     Active Substance: ACETAMINOPHEN
     Dosage: UNK (ONCE OR TWICE DAILY)
  5. ADVIL [Concomitant]
     Active Substance: IBUPROFEN
     Dosage: UNK

REACTIONS (21)
  - Vocal cord disorder [Unknown]
  - Vocal cord thickening [Unknown]
  - Dysphagia [Recovering/Resolving]
  - Rheumatoid arthritis [Unknown]
  - Therapeutic product effect incomplete [Unknown]
  - Product dose omission in error [Unknown]
  - Product dose omission issue [Unknown]
  - Diarrhoea [Recovered/Resolved]
  - Constipation [Unknown]
  - Sensitivity to weather change [Unknown]
  - Blood cholesterol increased [Unknown]
  - Increased appetite [Unknown]
  - Weight increased [Unknown]
  - Condition aggravated [Unknown]
  - Fatigue [Unknown]
  - Swelling [Unknown]
  - Gait disturbance [Unknown]
  - Inflammation [Unknown]
  - Gallbladder injury [Unknown]
  - Arthritis [Unknown]
  - Pain [Recovering/Resolving]

NARRATIVE: CASE EVENT DATE: 20201201
